FAERS Safety Report 20961951 (Version 3)
Quarter: 2023Q2

REPORT INFORMATION
  Report Type: Spontaneous
  Country: US (occurrence: US)
  Receive Date: 20220615
  Receipt Date: 20230510
  Transmission Date: 20230722
  Serious: No
  Sender: FDA-Public Use
  Company Number: US-PFIZER INC-2019355475

PATIENT
  Age: 67 Year
  Sex: Female

DRUGS (3)
  1. XELJANZ [Suspect]
     Active Substance: TOFACITINIB CITRATE
     Indication: Rheumatoid arthritis
     Dosage: 10 MG, 2X/DAY
  2. XELJANZ [Suspect]
     Active Substance: TOFACITINIB CITRATE
     Indication: Crohn^s disease
  3. CANASA [Concomitant]
     Active Substance: MESALAMINE
     Dosage: UNK

REACTIONS (4)
  - Weight increased [Unknown]
  - Gastrointestinal disorder [Unknown]
  - Off label use [Unknown]
  - Weight decreased [Recovered/Resolved]
